FAERS Safety Report 21777814 (Version 1)
Quarter: 2022Q4

REPORT INFORMATION
  Report Type: Spontaneous
  Country: SE (occurrence: SE)
  Receive Date: 20221226
  Receipt Date: 20221226
  Transmission Date: 20230112
  Serious: Yes (Hospitalization)
  Sender: FDA-Public Use
  Company Number: None

PATIENT
  Age: 87 Year
  Sex: Female

DRUGS (5)
  1. DONEPEZIL [Suspect]
     Active Substance: DONEPEZIL
     Indication: Memory impairment
     Dosage: UNK, QD (DOSE 1)
     Route: 065
     Dates: start: 2022, end: 202211
  2. NORMORIX MITE [Suspect]
     Active Substance: AMILORIDE HYDROCHLORIDE\HYDROCHLOROTHIAZIDE
     Indication: Blood pressure management
     Dosage: DOSE 1, QD (2,5/25 MG 1 X 1)
     Route: 065
     Dates: end: 202211
  3. ASPIRIN [Concomitant]
     Active Substance: ASPIRIN
     Indication: Product used for unknown indication
     Dosage: 75 MG, QD
     Route: 065
  4. LAXIDO APELSIN [Concomitant]
     Indication: Product used for unknown indication
     Dosage: UNK UNK, QD (DOSE 1) (LAXIDO ORANGE POWDER FOR ORAL SOLUTION)
     Route: 065
  5. SIMVASTATIN [Concomitant]
     Active Substance: SIMVASTATIN
     Indication: Product used for unknown indication
     Dosage: 20 MG, QD
     Route: 065

REACTIONS (3)
  - Hypotension [Recovered/Resolved]
  - Nightmare [Unknown]
  - Dizziness [Recovered/Resolved]

NARRATIVE: CASE EVENT DATE: 20220101
